FAERS Safety Report 9981283 (Version 2)
Quarter: 2014Q3

REPORT INFORMATION
  Report Type: Spontaneous
  Country: IT (occurrence: IT)
  Receive Date: 20140307
  Receipt Date: 20140718
  Transmission Date: 20150326
  Serious: Yes (Hospitalization)
  Sender: FDA-Public Use
  Company Number: IT-BAYER-2014-030484

PATIENT
  Age: 52 Year
  Sex: Male

DRUGS (8)
  1. LANTUS [Concomitant]
     Active Substance: INSULIN GLARGINE
  2. HUMALOG [Concomitant]
     Active Substance: INSULIN LISPRO
  3. LUVION [Concomitant]
     Active Substance: CANRENONE
  4. NEXAVAR [Suspect]
     Active Substance: SORAFENIB
     Indication: HEPATIC NEOPLASM
     Dosage: DAILY DOSE 800 MG
     Route: 048
     Dates: start: 20130522, end: 20130531
  5. ATENOLOL. [Concomitant]
     Active Substance: ATENOLOL
  6. LACTULOSE. [Concomitant]
     Active Substance: LACTULOSE
  7. LASIX [Concomitant]
     Active Substance: FUROSEMIDE
  8. LANSOPRAZOLE. [Concomitant]
     Active Substance: LANSOPRAZOLE

REACTIONS (1)
  - Visual acuity reduced [Recovered/Resolved]

NARRATIVE: CASE EVENT DATE: 20130531
